FAERS Safety Report 6190394-1 (Version None)
Quarter: 2009Q2

REPORT INFORMATION
  Report Type: 
  Country: None (occurrence: None)
  Receive Date: 20090514
  Receipt Date: 20090511
  Transmission Date: 20091009
  Serious: Yes (Hospitalization)
  Sender: FDA-Public Use
  Company Number: B0573318A

PATIENT
  Sex: Male

DRUGS (2)
  1. AUGMENTIN '125' [Suspect]
     Dosage: 1G SINGLE DOSE
     Route: 048
     Dates: start: 20090307, end: 20090307
  2. CELESTENE [Concomitant]
     Dosage: 4MG PER DAY
     Route: 065
     Dates: start: 20090307

REACTIONS (4)
  - ANAPHYLACTIC SHOCK [None]
  - BLOOD CREATINE PHOSPHOKINASE INCREASED [None]
  - HISTAMINE LEVEL INCREASED [None]
  - LOSS OF CONSCIOUSNESS [None]
